FAERS Safety Report 6366795-5 (Version None)
Quarter: 2009Q3

REPORT INFORMATION
  Report Type: 
  Country: None (occurrence: None)
  Receive Date: 20090921
  Receipt Date: 20090909
  Transmission Date: 20100115
  Serious: Yes (Death, Hospitalization, Other)
  Sender: FDA-Public Use
  Company Number: US-ROCHE-651817

PATIENT
  Sex: Male
  Weight: 68.9 kg

DRUGS (13)
  1. XELODA [Suspect]
     Indication: COLON CANCER
     Dosage: DOSE: 1500 MG IN MORNING, 2000 MG IN EVENING, 14 DAYS ON, 7 DAYS OFF
     Route: 048
     Dates: start: 20090523
  2. GLIPIZIDE [Concomitant]
     Dosage: DRUG REPORTED AS: GLIPIZIDE XL.
     Route: 048
  3. PLAVIX [Concomitant]
     Route: 048
  4. CREON [Concomitant]
     Dosage: TAKEN 3 DOSE FORM BEFORE EACH MEAL.
     Route: 048
  5. XALATAN [Concomitant]
  6. AMLODIPINE [Concomitant]
     Route: 048
  7. ASPIRIN [Concomitant]
     Route: 048
  8. SIMVASTATIN [Concomitant]
     Route: 048
  9. FERGON [Concomitant]
     Dosage: TAKEN DAILY.
  10. MULTI-VITAMIN [Concomitant]
     Dosage: DAILY SUPPLEMENT.
     Route: 048
  11. OSCAL [Concomitant]
     Dosage: DRUG REPORTED AS: OSCAL WITH VITAMIN D.
  12. FISH OIL [Concomitant]
     Dosage: FORM: SOFT GEL.
     Route: 048
  13. VIT B-12 [Concomitant]
     Route: 048

REACTIONS (6)
  - DEHYDRATION [None]
  - FUNGAEMIA [None]
  - MUCOSAL INFLAMMATION [None]
  - PALMAR-PLANTAR ERYTHRODYSAESTHESIA SYNDROME [None]
  - PYELONEPHRITIS FUNGAL [None]
  - SYSTEMIC CANDIDA [None]
